FAERS Safety Report 5307085-9 (Version None)
Quarter: 2007Q2

REPORT INFORMATION
  Report Type: 
  Country: None (occurrence: None)
  Receive Date: 20070425
  Receipt Date: 20070416
  Transmission Date: 20071010
  Serious: Yes (Other)
  Sender: FDA-Public Use
  Company Number: JP-BRISTOL-MYERS SQUIBB COMPANY-13702105

PATIENT
  Age: 63 Year
  Sex: Female

DRUGS (16)
  1. GATIFLO TABS 100 MG [Suspect]
     Indication: SEPSIS
     Route: 048
     Dates: start: 20070214, end: 20070220
  2. SEVEN E-P [Concomitant]
     Route: 048
  3. ASPIRIN [Concomitant]
     Route: 048
  4. VASOLAN [Concomitant]
     Route: 048
  5. SLOW-K [Concomitant]
     Route: 048
  6. HALOPERIDOL [Concomitant]
     Route: 048
  7. SILECE [Concomitant]
     Route: 048
  8. CERCINE [Concomitant]
     Route: 048
  9. THEO-DUR [Concomitant]
     Route: 048
  10. LASIX [Concomitant]
     Route: 048
  11. DIFLUCAN [Concomitant]
  12. FLAGYL [Concomitant]
     Route: 048
     Dates: start: 20070214, end: 20070220
  13. ACINON [Concomitant]
     Route: 048
     Dates: start: 20070214, end: 20070220
  14. WARFARIN SODIUM [Concomitant]
     Route: 048
  15. ALLOPURINOL [Concomitant]
     Route: 048
  16. MEROPEN [Concomitant]
     Indication: SEPSIS

REACTIONS (1)
  - HYPERGLYCAEMIA [None]
